FAERS Safety Report 5162402-8 (Version None)
Quarter: 2006Q4

REPORT INFORMATION
  Report Type: 
  Country: None (occurrence: None)
  Receive Date: 20061128
  Receipt Date: 20061128
  Transmission Date: 20070319
  Serious: Yes (Other)
  Sender: FDA-Public Use
  Company Number: None

PATIENT
  Age: 86 Year
  Sex: Male
  Weight: 74.3899 kg

DRUGS (19)
  1. TRAZODONE HCL [Suspect]
     Indication: INSOMNIA
     Dosage: 50 MG PO
     Route: 048
     Dates: start: 20060720
  2. ASPIRIN [Concomitant]
  3. FERROUS SULFATE TAB [Concomitant]
  4. FINASTERIDE [Concomitant]
  5. FLUNISOLIDE NASAL SPRAY [Concomitant]
  6. FUROSEMIDE [Concomitant]
  7. INSULIN [Concomitant]
  8. LISINOPRIL [Concomitant]
  9. LORATADINE [Concomitant]
  10. METFORMIN HCL [Concomitant]
  11. METOCLOPRAMIDE [Concomitant]
  12. METOPROLOL SUCCINATE [Concomitant]
  13. OMEPRAZOLE [Concomitant]
  14. SENNA [Concomitant]
  15. SIMVASTATIN [Concomitant]
  16. SPIRONOLACTONE [Concomitant]
  17. TAMSULOSIN HCL [Concomitant]
  18. M.V.I. [Concomitant]
  19. TRAVOPROST EYE DROPS [Concomitant]

REACTIONS (2)
  - DYSKINESIA [None]
  - SPEECH DISORDER [None]
